FAERS Safety Report 11628601 (Version 1)
Quarter: 2015Q4

REPORT INFORMATION
  Report Type: Spontaneous
  Country: FR (occurrence: FR)
  Receive Date: 20151014
  Receipt Date: 20151014
  Transmission Date: 20160304
  Serious: Yes (Hospitalization)
  Sender: FDA-Public Use
  Company Number: FR-BIOGENIDEC-2015BI137013

PATIENT
  Age: 44 Year
  Sex: Male

DRUGS (11)
  1. BOTULINUM TOXIN [Concomitant]
     Active Substance: BOTULINUM TOXIN TYPE A
     Indication: NEUROGENIC BLADDER
  2. ADVIL [Concomitant]
     Active Substance: IBUPROFEN
     Indication: EPIDIDYMITIS
     Dates: start: 20150727, end: 20150801
  3. AUGMENTIN [Concomitant]
     Active Substance: AMOXICILLIN\CLAVULANATE POTASSIUM
     Indication: EPIDIDYMITIS
     Dates: start: 20150824
  4. ADVIL [Concomitant]
     Active Substance: IBUPROFEN
     Indication: ORCHITIS
     Dates: start: 20150727, end: 20150801
  5. TYSABRI [Suspect]
     Active Substance: NATALIZUMAB
     Indication: MULTIPLE SCLEROSIS
     Route: 042
     Dates: start: 20070801
  6. TEGRETOL [Concomitant]
     Active Substance: CARBAMAZEPINE
  7. GUTRON [Concomitant]
     Active Substance: MIDODRINE
  8. LAROXYL [Concomitant]
     Active Substance: AMITRIPTYLINE
  9. OFLOCET [Concomitant]
     Active Substance: OFLOXACIN
     Indication: EPIDIDYMITIS
     Dates: start: 20150722
  10. OFLOCET [Concomitant]
     Active Substance: OFLOXACIN
     Indication: ORCHITIS
     Dates: start: 20150722
  11. AUGMENTIN [Concomitant]
     Active Substance: AMOXICILLIN\CLAVULANATE POTASSIUM
     Indication: ORCHITIS
     Dates: start: 20150824

REACTIONS (3)
  - Myocarditis [Recovered/Resolved]
  - Oral herpes [Recovered/Resolved]
  - Infection [Recovered/Resolved]

NARRATIVE: CASE EVENT DATE: 201508
